FAERS Safety Report 11121430 (Version 1)
Quarter: 2015Q2

REPORT INFORMATION
  Report Type: Spontaneous
  Country: BR (occurrence: None)
  Receive Date: 20150515
  Receipt Date: 20150515
  Transmission Date: 20150821
  Serious: Yes (Other)
  Sender: FDA-Public Use
  Company Number: BR-TORRENT-00002925

PATIENT
  Age: 86 Year
  Sex: Female

DRUGS (2)
  1. RESPIDON (INN:RISPERIDONE) [Suspect]
     Active Substance: RISPERIDONE
     Indication: SEDATIVE THERAPY
     Dosage: HALF OF A TABLET DAILY/ORAL
     Route: 048
  2. RANITIDINE [Concomitant]
     Active Substance: RANITIDINE\RANITIDINE HYDROCHLORIDE

REACTIONS (9)
  - Bedridden [None]
  - Treatment noncompliance [None]
  - Intentional product use issue [None]
  - Altered state of consciousness [None]
  - Confusional state [None]
  - Drooling [None]
  - Wrong technique in drug usage process [None]
  - Sedation [None]
  - Unresponsive to stimuli [None]

NARRATIVE: CASE EVENT DATE: 201505
